FAERS Safety Report 19273240 (Version 1)
Quarter: 2021Q2

REPORT INFORMATION
  Report Type: Report from Study
  Country: None (occurrence: US)
  Receive Date: 20210518
  Receipt Date: 20210518
  Transmission Date: 20210717
  Serious: Yes (Hospitalization, Other)
  Sender: FDA-Public Use
  Company Number: US-ABBVIE-21K-163-3905614-00

PATIENT
  Sex: Male

DRUGS (1)
  1. IMBRUVICA [Suspect]
     Active Substance: IBRUTINIB
     Indication: NON-HODGKIN^S LYMPHOMA
     Route: 048
     Dates: start: 20170714

REACTIONS (8)
  - Lung neoplasm malignant [Not Recovered/Not Resolved]
  - Fatigue [Not Recovered/Not Resolved]
  - Dermal cyst [Recovering/Resolving]
  - Non-Hodgkin^s lymphoma unspecified histology aggressive [Not Recovered/Not Resolved]
  - Asthenia [Not Recovered/Not Resolved]
  - Skin cancer [Recovering/Resolving]
  - Pyrexia [Not Recovered/Not Resolved]
  - Pneumonia [Not Recovered/Not Resolved]
